FAERS Safety Report 21272724 (Version 1)
Quarter: 2022Q3

REPORT INFORMATION
  Report Type: Other
  Country: IN (occurrence: None)
  Receive Date: 20220831
  Receipt Date: 20220831
  Transmission Date: 20221027
  Serious: Yes (Hospitalization)
  Sender: FDA-Public Use
  Company Number: IN-ROCHE-3169878

PATIENT
  Age: 37 Year
  Sex: Male
  Weight: 56 kg

DRUGS (4)
  1. CELLCEPT [Suspect]
     Active Substance: MYCOPHENOLATE MOFETIL
     Indication: Renal transplant
     Dosage: 500 MG IN MORNING, 500MG IN AFTERNOON AND 500 MG IN NIGHT
     Route: 048
     Dates: start: 20210829
  2. TACROLIMUS [Concomitant]
     Active Substance: TACROLIMUS
     Dosage: 2.5 MG AND 2.0 MG
  3. PREDNISOLONE [Concomitant]
     Active Substance: PREDNISOLONE
  4. RANITIDINE HYDROCHLORIDE [Concomitant]
     Active Substance: RANITIDINE HYDROCHLORIDE

REACTIONS (2)
  - Viral infection [Not Recovered/Not Resolved]
  - Viral diarrhoea [Not Recovered/Not Resolved]
